FAERS Safety Report 6819231-6 (Version None)
Quarter: 2010Q3

REPORT INFORMATION
  Report Type: 
  Country: None (occurrence: None)
  Receive Date: 20100707
  Receipt Date: 20100630
  Transmission Date: 20110219
  Serious: Yes (Death, Other)
  Sender: FDA-Public Use
  Company Number: DE-CELGENEUS-062-50794-10070046

PATIENT
  Age: 61 Year
  Sex: Male

DRUGS (5)
  1. VIDAZA [Suspect]
     Route: 058
     Dates: start: 20100101, end: 20100501
  2. RED BLOOD CELLS [Concomitant]
     Indication: PRODUCT USED FOR UNKNOWN INDICATION
     Route: 051
  3. PLATELETS, CONCENTRATED [Concomitant]
     Indication: PRODUCT USED FOR UNKNOWN INDICATION
     Route: 051
  4. ANTIBIOTICS [Concomitant]
     Indication: PROPHYLAXIS
     Route: 065
  5. ANTIMIKOTICS [Concomitant]
     Indication: PROPHYLAXIS
     Route: 065

REACTIONS (4)
  - ACUTE MYELOID LEUKAEMIA [None]
  - DEATH [None]
  - DISEASE PROGRESSION [None]
  - INJECTION SITE PAIN [None]
